FAERS Safety Report 5414024-9 (Version None)
Quarter: 2007Q3

REPORT INFORMATION
  Report Type: 
  Country: None (occurrence: None)
  Receive Date: 20070814
  Receipt Date: 20070802
  Transmission Date: 20080115
  Serious: Yes (Death, Other)
  Sender: FDA-Public Use
  Company Number: PK-ELI_LILLY_AND_COMPANY-PK200708000322

PATIENT
  Age: 60 Year
  Sex: Female

DRUGS (9)
  1. HUMULIN 70/30 [Suspect]
     Indication: DIABETES MELLITUS
     Dosage: 16 U, EACH MORNING, 12 UNIT EACH EVENING
     Route: 058
     Dates: start: 20070727
  2. OMEPRAZOLE [Concomitant]
     Indication: ABDOMINAL PAIN UPPER
     Dosage: UNK UNK, OTHER
     Route: 042
     Dates: start: 20070726, end: 20070726
  3. DIMENHYDRINATE [Concomitant]
     Indication: ANTIEMETIC SUPPORTIVE CARE
     Dosage: UNK UNK, OTHER
     Route: 042
     Dates: start: 20070726, end: 20070726
  4. MOTILIUM [Concomitant]
     Indication: ABDOMINAL PAIN UPPER
     Dosage: UNK, 2/D
     Route: 048
     Dates: start: 20070726
  5. BUFLOMEDIL [Concomitant]
     Indication: NEUROPATHY PERIPHERAL
     Dosage: 300 MG, 2/D
     Route: 048
     Dates: start: 20070726
  6. FUROSEMIDE W/SPIRONOLACTONE [Concomitant]
     Indication: OEDEMA
     Dosage: 40 MG, EACH MORNING
     Route: 048
     Dates: start: 20070727
  7. GLUCERNA [Concomitant]
     Indication: SUPPLEMENTATION THERAPY
     Dosage: UNK, UNK
     Route: 048
     Dates: start: 20070726
  8. CECLOR [Suspect]
     Indication: INFECTION
     Dosage: 500 MG, 2/D
     Dates: start: 20070726
  9. PANTOPRAZOLE SODIUM [Concomitant]
     Indication: ABDOMINAL PAIN UPPER
     Dosage: 40 MG, DAILY (1/D)
     Route: 048
     Dates: start: 20070726

REACTIONS (3)
  - CONDITION AGGRAVATED [None]
  - DYSPNOEA [None]
  - SILENT MYOCARDIAL INFARCTION [None]
